FAERS Safety Report 5843540-0 (Version None)
Quarter: 2008Q3

REPORT INFORMATION
  Report Type: 
  Country: None (occurrence: None)
  Receive Date: 20080812
  Receipt Date: 20080812
  Transmission Date: 20090109
  Serious: No
  Sender: FDA-Public Use
  Company Number: None

PATIENT
  Age: 32 Year
  Sex: Male
  Weight: 104.78 kg

DRUGS (1)
  1. VARENICLINE [Suspect]
     Indication: SMOKING CESSATION THERAPY
     Dosage: 1 TAB BID PO
     Route: 048
     Dates: start: 20080218, end: 20080316

REACTIONS (3)
  - MEMORY IMPAIRMENT [None]
  - NAUSEA [None]
  - VOMITING [None]
